FAERS Safety Report 24741440 (Version 2)
Quarter: 2024Q4

REPORT INFORMATION
  Report Type: Report from Study
  Country: US (occurrence: US)
  Receive Date: 20241217
  Receipt Date: 20241224
  Transmission Date: 20250115
  Serious: Yes (Other)
  Sender: ROCHE
  Company Number: US-ROCHE-10000157763

PATIENT
  Age: 41 Year
  Sex: Female
  Weight: 68.22 kg

DRUGS (14)
  1. CELLCEPT [Suspect]
     Active Substance: MYCOPHENOLATE MOFETIL
     Indication: Product used for unknown indication
     Route: 048
  2. CETIRIZINE [Concomitant]
     Active Substance: CETIRIZINE HYDROCHLORIDE
  3. ALBUTEROL SULFATE [Concomitant]
     Active Substance: ALBUTEROL SULFATE
  4. DILTIAZEMI HYDROCHLORIDUM [Concomitant]
  5. DOXYCYCLINE [Concomitant]
     Active Substance: DOXYCYCLINE
  6. EPINEPHRINE [Concomitant]
     Active Substance: EPINEPHRINE
  7. FAMOTIDINE [Concomitant]
     Active Substance: FAMOTIDINE
  8. GUSELKUMAB [Concomitant]
     Active Substance: GUSELKUMAB
  9. MONTELUKAST SODIUM [Concomitant]
     Active Substance: MONTELUKAST\MONTELUKAST SODIUM
  10. NALOXONE HCL [Concomitant]
     Active Substance: NALOXONE HYDROCHLORIDE
  11. OXYCODONE [Concomitant]
     Active Substance: OXYCODONE
  12. RIMEGEPANT SULFATE [Concomitant]
     Active Substance: RIMEGEPANT SULFATE
  13. TIRZEPATIDE [Concomitant]
     Active Substance: TIRZEPATIDE
  14. VORTIOXETINE [Concomitant]
     Active Substance: VORTIOXETINE

REACTIONS (4)
  - Anaphylactic reaction [Unknown]
  - Angioedema [Unknown]
  - Rhinitis allergic [Unknown]
  - Off label use [Unknown]
